FAERS Safety Report 9379448 (Version 1)
Quarter: 2013Q2

REPORT INFORMATION
  Report Type: Spontaneous
  Country: US (occurrence: None)
  Receive Date: 20130422
  Receipt Date: 20130422
  Transmission Date: 20140414
  Serious: Yes (Death)
  Sender: FDA-Public Use
  Company Number: AXC-2013-000151

PATIENT
  Age: 78 Year
  Sex: Male
  Weight: 42.6 kg

DRUGS (1)
  1. ZENPEP [Suspect]
     Indication: PRODUCT USED FOR UNKNOWN INDICATION
     Dosage: 4-6 CAPSULES DAILY.
     Route: 048
     Dates: end: 20130403

REACTIONS (3)
  - Chest pain [None]
  - Hypophagia [None]
  - Aspiration [None]
